FAERS Safety Report 9340674 (Version 2)
Quarter: 2013Q2

REPORT INFORMATION
  Report Type: Spontaneous
  Country: US (occurrence: US)
  Receive Date: 20130610
  Receipt Date: 20130621
  Transmission Date: 20140414
  Serious: No
  Sender: FDA-Public Use
  Company Number: US-GLAXOSMITHKLINE-A1026181A

PATIENT
  Age: 57 Year
  Sex: Female
  Weight: 81.8 kg

DRUGS (4)
  1. AVANDIA [Suspect]
     Indication: DIABETES MELLITUS
     Dosage: 5MGD PER DAY
     Route: 048
  2. LIPITOR [Concomitant]
     Indication: BLOOD CHOLESTEROL INCREASED
     Dosage: 40MGD PER DAY
     Route: 065
     Dates: end: 2012
  3. ASPIRIN [Concomitant]
     Indication: CARDIOVASCULAR EVENT PROPHYLAXIS
     Dosage: 81MG UNKNOWN
  4. METOPROLOL [Concomitant]
     Indication: HYPERTENSION
     Dosage: 50MGD PER DAY

REACTIONS (2)
  - Hypoglycaemia [Unknown]
  - Malaise [Unknown]
